FAERS Safety Report 11827672 (Version 1)
Quarter: 2015Q4

REPORT INFORMATION
  Report Type: Spontaneous
  Country: US (occurrence: US)
  Receive Date: 20151211
  Receipt Date: 20151211
  Transmission Date: 20160305
  Serious: Yes (Hospitalization, Other)
  Sender: FDA-Public Use
  Company Number: US-BAYER-2015-485433

PATIENT
  Age: 69 Year
  Sex: Female
  Weight: 69.84 kg

DRUGS (1)
  1. ALEVE [Suspect]
     Active Substance: NAPROXEN SODIUM
     Indication: ANALGESIC THERAPY
     Dosage: 1 DF, BID
     Route: 048
     Dates: start: 201510, end: 201511

REACTIONS (6)
  - Intentional product use issue [None]
  - Abdominal pain [None]
  - Haematochezia [None]
  - Vein collapse [None]
  - Intestinal haemorrhage [None]
  - Diarrhoea [None]

NARRATIVE: CASE EVENT DATE: 201510
